FAERS Safety Report 18012690 (Version 1)
Quarter: 2020Q3

REPORT INFORMATION
  Report Type: Report from Study
  Country: None (occurrence: FR)
  Receive Date: 20200713
  Receipt Date: 20200713
  Transmission Date: 20201103
  Serious: Yes (Other)
  Sender: FDA-Public Use
  Company Number: FR-ABBVIE-20K-056-3478146-00

PATIENT

DRUGS (12)
  1. IMBRUVICA [Suspect]
     Active Substance: IBRUTINIB
     Indication: LYMPHOMA
  2. IMBRUVICA [Suspect]
     Active Substance: IBRUTINIB
     Indication: CHRONIC LYMPHOCYTIC LEUKAEMIA
     Route: 048
     Dates: start: 20141111, end: 20181111
  3. IMBRUVICA [Suspect]
     Active Substance: IBRUTINIB
     Indication: HODGKIN^S DISEASE
  4. IMBRUVICA [Suspect]
     Active Substance: IBRUTINIB
     Indication: AMYLOIDOSIS
  5. IMBRUVICA [Suspect]
     Active Substance: IBRUTINIB
     Indication: WALDENSTROM^S MACROGLOBULINAEMIA
     Route: 048
  6. IMBRUVICA [Suspect]
     Active Substance: IBRUTINIB
     Indication: MANTLE CELL LYMPHOMA
  7. IMBRUVICA [Suspect]
     Active Substance: IBRUTINIB
     Indication: DIFFUSE LARGE B-CELL LYMPHOMA
  8. ASPIRIN. [Concomitant]
     Active Substance: ASPIRIN
     Indication: PRODUCT USED FOR UNKNOWN INDICATION
  9. IMBRUVICA [Suspect]
     Active Substance: IBRUTINIB
     Indication: CENTRAL NERVOUS SYSTEM LYMPHOMA
  10. RITUXIMAB. [Concomitant]
     Active Substance: RITUXIMAB
     Indication: PRODUCT USED FOR UNKNOWN INDICATION
  11. CLOPIDOGREL [Concomitant]
     Active Substance: CLOPIDOGREL BISULFATE
     Indication: PRODUCT USED FOR UNKNOWN INDICATION
  12. IMBRUVICA [Suspect]
     Active Substance: IBRUTINIB
     Indication: MARGINAL ZONE LYMPHOMA

REACTIONS (48)
  - Bowen^s disease [Unknown]
  - Bacteraemia [Unknown]
  - Supraventricular tachycardia [Unknown]
  - Meningorrhagia [Unknown]
  - Basal cell carcinoma [Unknown]
  - Autoimmune haemolytic anaemia [Unknown]
  - Epistaxis [Unknown]
  - Oedema peripheral [Unknown]
  - Ear infection [Unknown]
  - Erythema [Unknown]
  - Dry eye [Unknown]
  - Rectal haemorrhage [Unknown]
  - Rectal cancer [Unknown]
  - Genital infection [Unknown]
  - Pharyngitis [Unknown]
  - Cerebrovascular accident [Unknown]
  - Dry skin [Unknown]
  - Palmar-plantar erythrodysaesthesia syndrome [Unknown]
  - Cerebral haemorrhage [Unknown]
  - Varicella [Unknown]
  - Haematuria [Unknown]
  - Hypertension [Unknown]
  - Anaemia [Unknown]
  - Arthralgia [Unknown]
  - Haemoptysis [Unknown]
  - Pneumonia [Unknown]
  - Gingival bleeding [Unknown]
  - Lymphocytosis [Unknown]
  - Urinary tract infection [Unknown]
  - Diarrhoea [Unknown]
  - Rhinitis [Unknown]
  - Bicytopenia [Unknown]
  - Atrial fibrillation [Unknown]
  - Febrile neutropenia [Unknown]
  - Herpes ophthalmic [Unknown]
  - Gastrointestinal infection [Unknown]
  - Prostatitis [Unknown]
  - Neutropenia [Unknown]
  - Purpura [Unknown]
  - Pyrexia [Unknown]
  - Hepatitis [Unknown]
  - Haematoma [Unknown]
  - Skin reaction [Unknown]
  - Haematoma muscle [Unknown]
  - Thrombocytopenia [Unknown]
  - Skin infection [Unknown]
  - Muscle spasms [Unknown]
  - Asthenia [Unknown]
